FAERS Safety Report 11895117 (Version 5)
Quarter: 2022Q1

REPORT INFORMATION
  Report Type: Spontaneous
  Country: US (occurrence: US)
  Receive Date: 20160107
  Receipt Date: 20220328
  Transmission Date: 20220423
  Serious: Yes (Other)
  Sender: FDA-Public Use
  Company Number: US-PFIZER INC-2015442538

PATIENT
  Age: 41 Year
  Sex: Male
  Weight: 113 kg

DRUGS (3)
  1. SOMAVERT [Suspect]
     Active Substance: PEGVISOMANT
     Indication: Acromegaly
     Dosage: UNK
  2. SOMAVERT [Suspect]
     Active Substance: PEGVISOMANT
     Indication: Gigantism
     Dosage: 30 MG, DAILY (2 VIALS)
     Route: 058
     Dates: start: 201009
  3. SOMAVERT [Suspect]
     Active Substance: PEGVISOMANT
     Dosage: 30 MG, DAILY (2 VIALS)
     Route: 058

REACTIONS (11)
  - Erectile dysfunction [Unknown]
  - Drug ineffective [Unknown]
  - Poor quality product administered [Unknown]
  - Product storage error [Unknown]
  - Incorrect dose administered [Unknown]
  - Headache [Unknown]
  - Arthralgia [Recovered/Resolved]
  - Fatigue [Unknown]
  - Insulin-like growth factor increased [Unknown]
  - Blood corticotrophin increased [Unknown]
  - Blood test abnormal [Unknown]

NARRATIVE: CASE EVENT DATE: 20170101
